FAERS Safety Report 8188306-4 (Version None)
Quarter: 2012Q1

REPORT INFORMATION
  Report Type: 
  Country: None (occurrence: None)
  Receive Date: 20120306
  Receipt Date: 20120227
  Transmission Date: 20120608
  Serious: Yes (Hospitalization)
  Sender: FDA-Public Use
  Company Number: PT-ROCHE-1043974

PATIENT
  Age: 83 Year
  Sex: Female

DRUGS (5)
  1. SERMION [Concomitant]
  2. AVASTIN [Suspect]
     Indication: MACULOPATHY
     Route: 050
     Dates: start: 20090101
  3. RAMIPRIL W/ HYDROCHLOROTHIAZIDE [Concomitant]
     Indication: HYPERTENSION
  4. OMEPRAZOLE [Concomitant]
  5. PRESERVISION AREDS [Concomitant]

REACTIONS (7)
  - EPISTAXIS [None]
  - HAEMOPTYSIS [None]
  - HAEMATURIA [None]
  - MELAENA [None]
  - HAEMATEMESIS [None]
  - HYPOCOAGULABLE STATE [None]
  - INTERNATIONAL NORMALISED RATIO INCREASED [None]
